FAERS Safety Report 8823661 (Version 2)
Quarter: 2013Q1

REPORT INFORMATION
  Report Type: Report from Study
  Country: US (occurrence: US)
  Receive Date: 20121003
  Receipt Date: 20130213
  Transmission Date: 20140127
  Serious: No
  Sender: FDA-Public Use
  Company Number: US-VERTEX PHARMACEUTICAL INC.-2012-021173

PATIENT
  Sex: Male

DRUGS (4)
  1. VX-950 (TELAPREVIR) [Suspect]
     Indication: HEPATITIS C
     Dosage: 750 MG, TID
     Route: 048
     Dates: start: 20120909
  2. PEGASYS [Suspect]
     Indication: HEPATITIS C
     Dosage: 180 ?G, UNK
     Route: 058
     Dates: start: 201208
  3. RIBASPHERE [Suspect]
     Indication: HEPATITIS C
     Dosage: 600 MG, BID
     Dates: start: 201208
  4. LOVAZA [Concomitant]
     Dosage: 1 G, QD
     Route: 048

REACTIONS (3)
  - Red blood cell count abnormal [Unknown]
  - Influenza like illness [Unknown]
  - Chills [Unknown]
